FAERS Safety Report 6201037-2 (Version None)
Quarter: 2009Q2

REPORT INFORMATION
  Report Type: 
  Country: None (occurrence: None)
  Receive Date: 20090526
  Receipt Date: 20090518
  Transmission Date: 20091009
  Serious: Yes (Hospitalization)
  Sender: FDA-Public Use
  Company Number: US-ELI_LILLY_AND_COMPANY-US200905003574

PATIENT
  Sex: Female

DRUGS (2)
  1. HUMULIN R [Suspect]
     Dosage: UNK, UNK
     Dates: start: 20080101
  2. HUMULIN N [Suspect]

REACTIONS (3)
  - URTICARIA [None]
  - VISUAL ACUITY REDUCED [None]
  - WEIGHT DECREASED [None]
